FAERS Safety Report 18266378 (Version 1)
Quarter: 2020Q3

REPORT INFORMATION
  Report Type: Spontaneous
  Country: US (occurrence: US)
  Receive Date: 20200915
  Receipt Date: 20200915
  Transmission Date: 20201103
  Serious: No
  Sender: FDA-Public Use
  Company Number: US-AUROBINDO-AUR-APL-2019-055860

PATIENT
  Age: 84 Year
  Sex: Male
  Weight: 68 kg

DRUGS (1)
  1. PAROXETINE TABLETS USP 40MG [Suspect]
     Active Substance: PAROXETINE
     Indication: PAIN
     Dosage: 2 DOSAGE FORM, ONCE A DAY (2 TABLETS PER DAY)
     Route: 065

REACTIONS (3)
  - Muscle spasms [Unknown]
  - Muscular weakness [Unknown]
  - Muscle tightness [Unknown]
